FAERS Safety Report 10872317 (Version 3)
Quarter: 2015Q2

REPORT INFORMATION
  Report Type: Spontaneous
  Country: JP (occurrence: JP)
  Receive Date: 20150226
  Receipt Date: 20150407
  Transmission Date: 20150821
  Serious: Yes (Other)
  Sender: FDA-Public Use
  Company Number: JP-009507513-1502JPN009795

PATIENT
  Age: 22 Year
  Sex: Female
  Weight: 40 kg

DRUGS (4)
  1. BELSOMRA [Suspect]
     Active Substance: SUVOREXANT
     Indication: INSOMNIA
     Dosage: 20 MG, QD
     Route: 048
     Dates: start: 20150130, end: 20150130
  2. DEPAS [Concomitant]
     Active Substance: ETIZOLAM
     Dosage: 0.5 MG, QD(DIVIDED DOSE, FREQUENCY UNKNOWN)
     Route: 048
  3. PERPHENAZINE MALEATE [Concomitant]
     Dosage: 2 MG, AT BED TIME
     Route: 048
  4. FLUNITRAZEPAM [Concomitant]
     Active Substance: FLUNITRAZEPAM
     Indication: INSOMNIA
     Dosage: 2 MG, AT BED TIME, ONGOING FOR APPROXIMATELY 5 YEARS
     Route: 048
     Dates: start: 20090717, end: 20150130

REACTIONS (6)
  - Disorientation [Recovered/Resolved]
  - Dyscalculia [Recovered/Resolved]
  - Judgement impaired [Recovered/Resolved]
  - Memory impairment [Recovered/Resolved]
  - Disturbance in attention [Recovered/Resolved]
  - Somnolence [Recovered/Resolved]

NARRATIVE: CASE EVENT DATE: 20150131
